FAERS Safety Report 6191919-2 (Version None)
Quarter: 2009Q2

REPORT INFORMATION
  Report Type: 
  Country: None (occurrence: None)
  Receive Date: 20090515
  Receipt Date: 20090505
  Transmission Date: 20091009
  Serious: Yes (Life-Threatening, Hospitalization)
  Sender: FDA-Public Use
  Company Number: DE-JNJFOC-20090303264

PATIENT
  Age: 29 Year
  Sex: Male

DRUGS (4)
  1. REMICADE [Suspect]
     Indication: CROHN'S DISEASE
     Route: 042
  2. MESALAZIN [Concomitant]
  3. CORTICOSTEROIDS [Concomitant]
  4. BUDESONIDE [Concomitant]

REACTIONS (6)
  - ABSCESS [None]
  - ANAL FISTULA [None]
  - NAUSEA [None]
  - SEPSIS [None]
  - VERTIGO [None]
  - VOMITING [None]
